FAERS Safety Report 13375129 (Version 2)
Quarter: 2017Q2

REPORT INFORMATION
  Report Type: Report from Study
  Country: None (occurrence: FR)
  Receive Date: 20170327
  Receipt Date: 20170403
  Transmission Date: 20170830
  Serious: Yes (Other)
  Sender: FDA-Public Use
  Company Number: FR-ABBVIE-17P-056-1917126-00

PATIENT
  Sex: Female

DRUGS (4)
  1. EPZICOM [Suspect]
     Active Substance: ABACAVIR SULFATE\LAMIVUDINE
     Indication: ANTIRETROVIRAL THERAPY
     Dosage: TAB/CAPS; 1 COURSE, NOT PRIOR TO CONCEPTION, EARLIEST EXPOSURE 2ND TRIMESTER
     Route: 048
     Dates: start: 20160526
  2. RITONAVIR. [Suspect]
     Active Substance: RITONAVIR
     Indication: ANTIRETROVIRAL THERAPY
     Dosage: 1 COURSE, NOT PRIOR TO CONCEPTION, EARLIEST EXPOSURE 2ND TRIMESTER
     Route: 048
     Dates: start: 20160526
  3. TRIUMEQ [Suspect]
     Active Substance: ABACAVIR SULFATE\DOLUTEGRAVIR SODIUM\LAMIVUDINE
     Indication: ANTIRETROVIRAL THERAPY
     Dosage: TAB/CAPS; 1 COURSE, PRIOR TO CONCEPTION, EARLIEST EXPOSURE 1ST TRIMESTER
     Route: 048
     Dates: start: 20151029, end: 20160526
  4. REYATAZ [Suspect]
     Active Substance: ATAZANAVIR SULFATE
     Indication: ANTIRETROVIRAL THERAPY
     Dosage: 1 COURSE, NOT PRIOR TO CONCEPTION, EARLIEST EXPOSURE 2ND TRIMESTER
     Route: 048
     Dates: start: 20160526

REACTIONS (4)
  - Live birth [Unknown]
  - Gestational diabetes [Unknown]
  - Exposure during pregnancy [Unknown]
  - Escherichia urinary tract infection [Unknown]

NARRATIVE: CASE EVENT DATE: 20161207
